FAERS Safety Report 7491393-X (Version None)
Quarter: 2011Q2

REPORT INFORMATION
  Report Type: 
  Country: None (occurrence: None)
  Receive Date: 20110519
  Receipt Date: 20110506
  Transmission Date: 20111010
  Serious: Yes (Hospitalization, Other)
  Sender: FDA-Public Use
  Company Number: PHEH2009US03889

PATIENT
  Sex: Male

DRUGS (60)
  1. LORAZEPAM [Concomitant]
  2. VALIUM [Concomitant]
  3. SULFAMETHOXAZOLE AND TRIMETHOPRIM [Concomitant]
  4. VELCADE [Concomitant]
  5. ZITHROMAX [Concomitant]
  6. AVALIDE [Concomitant]
  7. COREG [Concomitant]
  8. MORPHINE SULFATE [Concomitant]
  9. REGLAN [Concomitant]
  10. TEMAZ [Concomitant]
  11. ENTOCORT EC [Concomitant]
  12. TRAZODONE HCL [Concomitant]
  13. VINCRISTINE + ADRIAMYCIN + DEXAMETHASONE [Concomitant]
  14. REVLIMID [Concomitant]
  15. MS CONTIN [Concomitant]
  16. SENNA-MINT WAF [Concomitant]
  17. TRIAMCINOLONE [Concomitant]
  18. ZOMETA [Suspect]
  19. BACTRIM [Concomitant]
  20. PANTOPRAZOLE [Concomitant]
  21. VALCYTE [Concomitant]
  22. FLAGYL [Concomitant]
  23. DIFLUCAN [Concomitant]
  24. COMPAZINE [Concomitant]
  25. PERCOCET [Concomitant]
  26. CYMBALTA [Concomitant]
  27. BENAZEPRIL HYDROCHLORIDE [Concomitant]
  28. PREDNISONE [Concomitant]
  29. PROTONIX [Concomitant]
  30. HYDROMORPHONE HCL [Concomitant]
  31. VALACICLOVIR [Concomitant]
  32. CYCLOSPORINE [Concomitant]
  33. MECLIZINE [Concomitant]
  34. AREDIA [Suspect]
  35. ENTOCORT EC [Concomitant]
  36. MAGNESIUM [Concomitant]
  37. MYCOPHENOLIC ACID [Concomitant]
  38. PENICILLIN VK [Concomitant]
  39. NPH INSULIN [Concomitant]
  40. FLEXERIL [Concomitant]
  41. CADUET [Concomitant]
  42. NALOXONE [Concomitant]
  43. NOVOLOG [Concomitant]
  44. ANTIVERT ^PFIZER^ [Concomitant]
  45. FENTANYL [Concomitant]
  46. HYDROCODONE [Concomitant]
  47. MEDROL [Concomitant]
  48. VALTREX [Concomitant]
  49. LANTUS [Concomitant]
  50. IMODIUM MULTI-SYMPTOM RELIEF [Concomitant]
  51. METOCLOPRAMIDE [Concomitant]
  52. ONDANSETRON [Concomitant]
  53. CLARITIN [Concomitant]
  54. TACROLIMUS [Concomitant]
  55. AMBIEN [Concomitant]
  56. THALIDOMIDE [Concomitant]
  57. NEURONTIN [Concomitant]
  58. PREVACID [Concomitant]
  59. COUMADIN [Concomitant]
  60. MELPHALAN HYDROCHLORIDE [Concomitant]

REACTIONS (84)
  - OSTEORADIONECROSIS [None]
  - OSTEOLYSIS [None]
  - PNEUMONIA [None]
  - CARDIOMYOPATHY [None]
  - LEFT VENTRICULAR HYPERTROPHY [None]
  - EJECTION FRACTION [None]
  - FOREIGN BODY REACTION [None]
  - INTERVERTEBRAL DISC DEGENERATION [None]
  - GASTRIC POLYPS [None]
  - GASTRITIS [None]
  - OROPHARYNGEAL PAIN [None]
  - CYST [None]
  - DEHYDRATION [None]
  - DERMATITIS CONTACT [None]
  - PAIN IN EXTREMITY [None]
  - DYSURIA [None]
  - ERUCTATION [None]
  - DYSPEPSIA [None]
  - BONE MARROW DISORDER [None]
  - OSTEONECROSIS OF JAW [None]
  - CYTOMEGALOVIRUS INFECTION [None]
  - HYPERLIPIDAEMIA [None]
  - FATIGUE [None]
  - EXTRASYSTOLES [None]
  - LEFT VENTRICULAR DYSFUNCTION [None]
  - INSOMNIA [None]
  - DYSPHONIA [None]
  - HYPERCALCAEMIA [None]
  - IMPAIRED GASTRIC EMPTYING [None]
  - SLEEP APNOEA SYNDROME [None]
  - DIARRHOEA [None]
  - ARTHRALGIA [None]
  - HAEMATEMESIS [None]
  - DYSPNOEA [None]
  - CHEST PAIN [None]
  - NEPHROLITHIASIS [None]
  - ANAEMIA [None]
  - PAIN [None]
  - ANXIETY [None]
  - PAIN IN JAW [None]
  - HYPERTENSION [None]
  - DIABETES MELLITUS [None]
  - RENAL FAILURE ACUTE [None]
  - INFLAMMATION [None]
  - RENAL DISORDER [None]
  - BRONCHITIS [None]
  - OSTEONECROSIS [None]
  - HYPERHIDROSIS [None]
  - OCULAR HYPERAEMIA [None]
  - POLLAKIURIA [None]
  - ASTHENIA [None]
  - LIMB DISCOMFORT [None]
  - ABDOMINAL DISTENSION [None]
  - ABDOMINAL DISCOMFORT [None]
  - NAUSEA [None]
  - PURULENCE [None]
  - GENERAL PHYSICAL HEALTH DETERIORATION [None]
  - DECREASED INTEREST [None]
  - GRAFT VERSUS HOST DISEASE [None]
  - GASTROOESOPHAGEAL REFLUX DISEASE [None]
  - OSTEOPOROSIS [None]
  - RASH [None]
  - NEUROPATHY PERIPHERAL [None]
  - HYPOXIA [None]
  - NEOPLASM MALIGNANT [None]
  - PYREXIA [None]
  - DUODENITIS [None]
  - ODYNOPHAGIA [None]
  - TUBERCULOSIS [None]
  - BLOOD COUNT ABNORMAL [None]
  - PARAESTHESIA [None]
  - BONE DISORDER [None]
  - CANDIDIASIS [None]
  - METASTASES TO BONE MARROW [None]
  - BLOOD SODIUM DECREASED [None]
  - THROMBOSIS [None]
  - DYSPHAGIA [None]
  - HEADACHE [None]
  - DRY EYE [None]
  - DIZZINESS [None]
  - SWELLING FACE [None]
  - IMPAIRED HEALING [None]
  - BLOOD MAGNESIUM DECREASED [None]
  - BURSITIS [None]
